FAERS Safety Report 26218133 (Version 1)
Quarter: 2025Q4

REPORT INFORMATION
  Report Type: Spontaneous
  Country: EU (occurrence: EU)
  Receive Date: 20251231
  Receipt Date: 20251231
  Transmission Date: 20260117
  Serious: Yes (Other)
  Sender: RANBAXY
  Company Number: EU-SUN PHARMACEUTICAL INDUSTRIES INC-2025R1-543883

PATIENT
  Age: 42 Year
  Sex: Female

DRUGS (1)
  1. DEXAMETHASONE [Suspect]
     Active Substance: DEXAMETHASONE
     Indication: Prophylaxis
     Dosage: 2 MILLIGRAM, DAILY
     Route: 065

REACTIONS (6)
  - Cushing^s syndrome [Unknown]
  - Systemic scleroderma [Unknown]
  - Therapeutic response decreased [Unknown]
  - Headache [Recovered/Resolved]
  - Asthenia [Unknown]
  - Depression [Unknown]
